FAERS Safety Report 19961690 (Version 2)
Quarter: 2021Q4

REPORT INFORMATION
  Report Type: Spontaneous
  Country: US (occurrence: US)
  Receive Date: 20211018
  Receipt Date: 20211025
  Transmission Date: 20220303
  Serious: Yes (Other)
  Sender: FDA-Public Use
  Company Number: US-JNJFOC-20211025181

PATIENT
  Sex: Male

DRUGS (1)
  1. BALVERSA [Suspect]
     Active Substance: ERDAFITINIB
     Indication: Product used for unknown indication
     Dosage: DOSAGE: 2 X 4 MG
     Route: 048

REACTIONS (3)
  - Internal haemorrhage [Unknown]
  - Cancer pain [Not Recovered/Not Resolved]
  - Product dose omission issue [Unknown]
